FAERS Safety Report 23631591 (Version 3)
Quarter: 2025Q1

REPORT INFORMATION
  Report Type: Spontaneous
  Country: BR (occurrence: BR)
  Receive Date: 20240314
  Receipt Date: 20250129
  Transmission Date: 20250408
  Serious: No
  Sender: BECTON DICKINSON
  Company Number: BR-BECTON DICKINSON-BR-BD-24-000139

PATIENT

DRUGS (1)
  1. CHLORAPREP [Suspect]
     Active Substance: CHLORHEXIDINE GLUCONATE\ISOPROPYL ALCOHOL
     Indication: Product used for unknown indication
     Route: 065

REACTIONS (1)
  - Device physical property issue [Unknown]

NARRATIVE: CASE EVENT DATE: 20240229
